FAERS Safety Report 5019548-4 (Version None)
Quarter: 2006Q2

REPORT INFORMATION
  Report Type: 
  Country: None (occurrence: None)
  Receive Date: 20060531
  Receipt Date: 20060529
  Transmission Date: 20061013
  Serious: Yes (Hospitalization)
  Sender: FDA-Public Use
  Company Number: 200612096GDS

PATIENT
  Age: 79 Year
  Sex: Male

DRUGS (5)
  1. ACETYLSALICYLIC ACID SRT [Suspect]
     Dosage: 400 MG, TOTAL DAILY, ORAL
     Route: 048
     Dates: start: 20060313, end: 20060315
  2. DOXIUM (CALCIUM DOBESILATE) [Suspect]
     Indication: VARICOSE VEIN
     Dosage: 1000 MG, TOTAL DAILY, ORAL
     Route: 048
     Dates: start: 20060311, end: 20060313
  3. HEMERAN GEL (HEPARINOID) [Suspect]
     Indication: VARICOSE VEIN
     Dosage: PRN, TOPICAL
     Route: 061
     Dates: start: 20060309, end: 20060313
  4. ATENOLOL [Concomitant]
  5. FINASTERIDE [Concomitant]

REACTIONS (8)
  - ACANTHOLYSIS [None]
  - CHILLS [None]
  - FOLLICULITIS [None]
  - PURPURA [None]
  - PYREXIA [None]
  - RASH ERYTHEMATOUS [None]
  - THROMBOCYTOPENIA [None]
  - TOXIC SKIN ERUPTION [None]
